FAERS Safety Report 6531995-8 (Version None)
Quarter: 2010Q1

REPORT INFORMATION
  Report Type: 
  Country: None (occurrence: None)
  Receive Date: 20100108
  Receipt Date: 20091215
  Transmission Date: 20100710
  Serious: Yes (Death)
  Sender: FDA-Public Use
  Company Number: FI-PFIZER INC-2009310090

PATIENT
  Age: 50 Year
  Sex: Male

DRUGS (5)
  1. CHAMPIX [Suspect]
     Indication: SMOKING CESSATION THERAPY
     Dosage: 0.5 MG, 1X/DAY FOR FIRST THREE DAYS
     Route: 048
     Dates: start: 20080501, end: 20080101
  2. CHAMPIX [Suspect]
     Dosage: 0.5 MG, 2X/DAY FOR FOUR DAYS
     Route: 048
     Dates: start: 20080101, end: 20080101
  3. CHAMPIX [Suspect]
     Dosage: 1 MG, 2X/DAY UNTIL END OF COURSE
     Route: 048
     Dates: start: 20080101
  4. CELEBRA [Concomitant]
     Indication: MUSCULOSKELETAL PAIN
     Dosage: 200 MG, 2X/DAY PRN
     Dates: start: 20020601
  5. SIMVASTATIN [Concomitant]
     Indication: HYPERCHOLESTEROLAEMIA
     Dosage: 20 MG, 1X/DAY
     Dates: start: 20080901

REACTIONS (2)
  - COMPLETED SUICIDE [None]
  - DEPRESSION [None]
